FAERS Safety Report 18809568 (Version 1)
Quarter: 2021Q1

REPORT INFORMATION
  Report Type: Spontaneous
  Country: AU (occurrence: AU)
  Receive Date: 20210129
  Receipt Date: 20210129
  Transmission Date: 20210419
  Serious: Yes (Death, Hospitalization)
  Sender: FDA-Public Use
  Company Number: AU-MYLANLABS-2021M1005353

PATIENT
  Sex: Male

DRUGS (3)
  1. BENZTROPINE                        /00012901/ [Interacting]
     Active Substance: BENZTROPINE
     Indication: PRODUCT USED FOR UNKNOWN INDICATION
     Dosage: 2 MILLIGRAM, QD
     Route: 065
  2. OLANZAPINE. [Suspect]
     Active Substance: OLANZAPINE
     Indication: SCHIZOPHRENIA
     Dosage: 10 MILLIGRAM, QD
     Route: 065
  3. BENZTROPINE                        /00012901/ [Interacting]
     Active Substance: BENZTROPINE
     Dosage: 2 MILLIGRAM, BID
     Route: 065

REACTIONS (7)
  - Constipation [Fatal]
  - Multiple organ dysfunction syndrome [Fatal]
  - Small intestinal obstruction [Fatal]
  - Drug interaction [Fatal]
  - Abdominal adhesions [Fatal]
  - Acute kidney injury [Fatal]
  - Pneumonia aspiration [Fatal]
